FAERS Safety Report 18987979 (Version 5)
Quarter: 2022Q3

REPORT INFORMATION
  Report Type: Spontaneous
  Country: US (occurrence: US)
  Receive Date: 20210309
  Receipt Date: 20220903
  Transmission Date: 20221027
  Serious: Yes (Hospitalization, Other)
  Sender: FDA-Public Use
  Company Number: US-SA-SAC20210308000997

PATIENT
  Age: 22 Year
  Sex: Male

DRUGS (6)
  1. ALPROLIX [Suspect]
     Active Substance: EFTRENONACOG ALFA
     Indication: Haemorrhage prophylaxis
     Dosage: 7000 IU
     Route: 042
  2. ALPROLIX [Suspect]
     Active Substance: EFTRENONACOG ALFA
     Indication: Haemorrhage prophylaxis
     Dosage: 7000 IU
     Route: 042
  3. ALPROLIX [Suspect]
     Active Substance: EFTRENONACOG ALFA
     Dosage: 7000 IU, PRN
     Route: 042
  4. ALPROLIX [Suspect]
     Active Substance: EFTRENONACOG ALFA
     Dosage: 7000 IU, PRN
     Route: 042
  5. ALPROLIX [Suspect]
     Active Substance: EFTRENONACOG ALFA
     Dosage: 6000 IU ONCE A WEEK DAYS FOR PROPHY AND PRN MOD. JOINT BLEEDS
     Route: 042
  6. ALPROLIX [Suspect]
     Active Substance: EFTRENONACOG ALFA
     Dosage: 6000 IU ONCE A WEEK DAYS FOR PROPHY AND PRN MOD. JOINT BLEEDS
     Route: 042

REACTIONS (9)
  - Haemarthrosis [Recovered/Resolved]
  - Haemorrhage [Unknown]
  - Condition aggravated [Unknown]
  - Vascular pseudoaneurysm [Unknown]
  - Epistaxis [Unknown]
  - Tongue biting [Unknown]
  - Glossodynia [Unknown]
  - Swollen tongue [Unknown]
  - Haematoma [Unknown]

NARRATIVE: CASE EVENT DATE: 20210219
